FAERS Safety Report 4843913-9 (Version None)
Quarter: 2005Q4

REPORT INFORMATION
  Report Type: 
  Country: None (occurrence: None)
  Receive Date: 20051202
  Receipt Date: 20050803
  Transmission Date: 20060501
  Serious: Yes (Other)
  Sender: FDA-Public Use
  Company Number: US-GLAXOSMITHKLINE-A0568830A

PATIENT
  Age: 20 Month
  Sex: Female

DRUGS (2)
  1. AUGMENTIN ES-600 [Suspect]
     Indication: DRUG USE FOR UNKNOWN INDICATION
     Dosage: 1TSP TWICE PER DAY
     Route: 048
     Dates: start: 20050715, end: 20050803
  2. NO CONCURRENT MEDICATION [Concomitant]

REACTIONS (1)
  - TOOTH DISCOLOURATION [None]
